FAERS Safety Report 4696794-0 (Version None)
Quarter: 2005Q2

REPORT INFORMATION
  Report Type: 
  Country: None (occurrence: None)
  Receive Date: 20050622
  Receipt Date: 20050608
  Transmission Date: 20051028
  Serious: Yes (Hospitalization)
  Sender: FDA-Public Use
  Company Number: AU-NOVOPROD-244689

PATIENT
  Age: 47 Year
  Sex: Male

DRUGS (2)
  1. ACTRAPID [Suspect]
     Indication: DIABETES MELLITUS
  2. PROTAPHANE [Suspect]
     Indication: DIABETES MELLITUS

REACTIONS (5)
  - DIABETIC COMA [None]
  - DIALYSIS [None]
  - HYPOGLYCAEMIA UNAWARENESS [None]
  - LIVER DISORDER [None]
  - RENAL FAILURE [None]
